FAERS Safety Report 23134954 (Version 3)
Quarter: 2023Q4

REPORT INFORMATION
  Report Type: Spontaneous
  Country: ES (occurrence: ES)
  Receive Date: 20231101
  Receipt Date: 20231207
  Transmission Date: 20240110
  Serious: Yes (Other)
  Sender: FDA-Public Use
  Company Number: ES-ROCHE-3440239

PATIENT
  Age: 18 Year
  Sex: Female

DRUGS (3)
  1. BEVACIZUMAB [Suspect]
     Active Substance: BEVACIZUMAB
     Indication: Neurofibromatosis
     Dosage: UNK
     Route: 065
  2. BRIGATINIB [Concomitant]
     Active Substance: BRIGATINIB
     Dosage: UNK
  3. PREDNISONE [Concomitant]
     Active Substance: PREDNISONE
     Dosage: 60 MG, DAILY

REACTIONS (6)
  - Nephrotic syndrome [Unknown]
  - Thrombotic microangiopathy [Unknown]
  - Nephropathy toxic [Unknown]
  - Glomerulonephritis [Unknown]
  - Hypertension [Unknown]
  - Off label use [Unknown]
